FAERS Safety Report 14065652 (Version 1)
Quarter: 2017Q4

REPORT INFORMATION
  Report Type: Spontaneous
  Country: DE (occurrence: DE)
  Receive Date: 20171009
  Receipt Date: 20171009
  Transmission Date: 20180321
  Serious: Yes (Hospitalization, Other)
  Sender: FDA-Public Use
  Company Number: GXKR2017DE004580

PATIENT
  Sex: Female
  Weight: 16 kg

DRUGS (2)
  1. METRONIDAZOL [Concomitant]
     Active Substance: METRONIDAZOLE
     Indication: APPENDICITIS PERFORATED
     Dosage: 1 DF, QD
     Route: 065
     Dates: start: 20170815, end: 20170820
  2. CEFTRIAXONE. [Suspect]
     Active Substance: CEFTRIAXONE
     Indication: APPENDICITIS PERFORATED
     Dosage: 1 DF, QD
     Route: 065
     Dates: start: 20170815, end: 20170820

REACTIONS (4)
  - Gamma-glutamyltransferase increased [Recovered/Resolved]
  - Cholelithiasis [Recovered/Resolved]
  - Transaminases increased [Recovered/Resolved]
  - Pain [Recovered/Resolved]

NARRATIVE: CASE EVENT DATE: 201708
